FAERS Safety Report 16298019 (Version 2)
Quarter: 2019Q2

REPORT INFORMATION
  Report Type: Spontaneous
  Country: US (occurrence: US)
  Receive Date: 20190510
  Receipt Date: 20190621
  Transmission Date: 20190711
  Serious: Yes (Other)
  Sender: FDA-Public Use
  Company Number: US-TEVA-2019-US-1048193

PATIENT
  Sex: Female

DRUGS (1)
  1. COPAXONE [Suspect]
     Active Substance: GLATIRAMER ACETATE
     Indication: MULTIPLE SCLEROSIS
     Route: 058
     Dates: end: 20190325

REACTIONS (7)
  - Injection site pruritus [Recovered/Resolved with Sequelae]
  - Injection site urticaria [Unknown]
  - Multiple sclerosis [Unknown]
  - Drug ineffective [Unknown]
  - Urticaria [Recovered/Resolved with Sequelae]
  - Hypersensitivity [Unknown]
  - Multiple sclerosis [Not Recovered/Not Resolved]
